FAERS Safety Report 8854073 (Version 1)
Quarter: 2012Q4

REPORT INFORMATION
  Report Type: 
  Country: US (occurrence: US)
  Receive Date: 20121022
  Receipt Date: 20121022
  Transmission Date: 20130627
  Serious: Yes (Other)
  Sender: FDA-Public Use
  Company Number: US-JNJFOC-20121009111

PATIENT
  Age: 71 Year
  Sex: Male
  Weight: 72.58 kg

DRUGS (5)
  1. XARELTO [Suspect]
     Indication: CEREBROVASCULAR ACCIDENT PROPHYLAXIS
     Route: 048
     Dates: start: 20120904
  2. XARELTO [Suspect]
     Indication: ATRIAL FIBRILLATION
     Route: 048
     Dates: start: 20120904
  3. DILTIAZEM [Concomitant]
     Indication: BLOOD PRESSURE
     Route: 048
  4. PROPRANOLOL [Concomitant]
     Indication: CARDIAC DISORDER
     Route: 048
     Dates: start: 20120904
  5. XYZAL [Concomitant]
     Indication: MULTIPLE ALLERGIES
     Route: 048

REACTIONS (2)
  - Atrial flutter [Recovered/Resolved]
  - Blood pressure increased [Not Recovered/Not Resolved]
